FAERS Safety Report 19567529 (Version 1)
Quarter: 2021Q3

REPORT INFORMATION
  Report Type: Spontaneous
  Country: GB (occurrence: GB)
  Receive Date: 20210716
  Receipt Date: 20210716
  Transmission Date: 20211014
  Serious: Yes (Other)
  Sender: FDA-Public Use
  Company Number: GB-TEVA-2021-GB-1932151

PATIENT
  Age: 40 Year
  Sex: Female
  Weight: 70 kg

DRUGS (8)
  1. FEXOFENADINE HYDROCHLORIDE. [Suspect]
     Active Substance: FEXOFENADINE HYDROCHLORIDE
     Indication: SEASONAL ALLERGY
     Dosage: 180 MILLIGRAM DAILY;
     Route: 048
     Dates: start: 20210621, end: 20210628
  2. ALPHA LIPOIC ACID [Concomitant]
     Active Substance: .ALPHA.-LIPOIC ACID
     Dosage: 300MG, 1?2 DAILY.
     Dates: start: 20200601
  3. QUERCETIN [Concomitant]
     Active Substance: QUERCETIN
     Dates: start: 20210301
  4. VITAMIN D [Concomitant]
     Active Substance: VITAMIN D NOS
     Dosage: 3000 IU (INTERNATIONAL UNIT) DAILY; OROMUCOSAL SPRAY
     Dates: start: 20200501
  5. PIRINASE HAYFEVER RELIEF [Suspect]
     Active Substance: FLUTICASONE PROPIONATE
     Indication: SEASONAL ALLERGY
     Dosage: 4 DOSAGE FORMS DAILY;
     Route: 045
     Dates: start: 20210621, end: 20210626
  6. FLUTICASONE PROPIONATE. [Concomitant]
     Active Substance: FLUTICASONE PROPIONATE
     Dates: start: 20200621, end: 20200626
  7. GLUTATHIONE [Concomitant]
     Active Substance: GLUTATHIONE
     Dosage: 300MG?1000MG DAILY.
     Dates: start: 20200601
  8. VITAMIN K2 [Concomitant]
     Active Substance: MENAQUINONE 6
     Dosage: 180 MICROGRAM DAILY; OROMUCOSAL SPRAY
     Dates: start: 20201101

REACTIONS (6)
  - Cough [Recovering/Resolving]
  - Nasal discomfort [Recovered/Resolved]
  - Sneezing [Unknown]
  - Nasal pruritus [Recovered/Resolved]
  - Dyspnoea [Recovering/Resolving]
  - Rhinorrhoea [Unknown]

NARRATIVE: CASE EVENT DATE: 20210621
